FAERS Safety Report 10681290 (Version 1)
Quarter: 2014Q4

REPORT INFORMATION
  Report Type: Report from Study
  Country: ES (occurrence: ES)
  Receive Date: 20141230
  Receipt Date: 20141230
  Transmission Date: 20150529
  Serious: Yes (Hospitalization)
  Sender: FDA-Public Use
  Company Number: ES-ROCHE-1513129

PATIENT
  Age: 64 Year
  Sex: Male
  Weight: 72.5 kg

DRUGS (9)
  1. OMEPRAZOLE. [Concomitant]
     Active Substance: OMEPRAZOLE
     Indication: PROPHYLAXIS
     Route: 065
     Dates: start: 20140609
  2. FENTANYL. [Concomitant]
     Active Substance: FENTANYL
     Indication: PAIN
     Route: 062
     Dates: start: 20140413
  3. LEUCOVORIN [Suspect]
     Active Substance: LEUCOVORIN
     Indication: COLON CANCER
     Dosage: LAST DOSE PRIOR TO SAE: 17/NOV/2014, 690 MG?NO OF LAST CYCLE: 17
     Route: 042
     Dates: start: 20140324
  4. BEVACIZUMAB [Suspect]
     Active Substance: BEVACIZUMAB
     Indication: COLON CANCER
     Dosage: LAST DOSE PRIOR TO SAE:17/NOV/2014, 355 MG?NO OF LAST CYCLE: 17
     Route: 042
     Dates: start: 20140324
  5. 5-FLUOROURACIL [Suspect]
     Active Substance: FLUOROURACIL
     Indication: COLON CANCER
     Dosage: LAST DOSE PRIOR TO SAE: 17/NOV/2014, 3800 (UNIT NOT REPORTED)?NO OF LAST CYCLE: 17
     Route: 042
     Dates: start: 20140324
  6. METOCLOPRAMIDE. [Concomitant]
     Active Substance: METOCLOPRAMIDE
     Indication: VOMITING
     Route: 048
     Dates: start: 20141111, end: 20141121
  7. OXALIPLATIN. [Suspect]
     Active Substance: OXALIPLATIN
     Indication: COLON CANCER
     Dosage: LAST DOSE PRIOR TO SAE: 20/OCT/2014, 110 MG?NO OF LAST CYCLE RECEIVED: 15
     Route: 042
     Dates: start: 20140324
  8. OXYCODON [Concomitant]
     Active Substance: OXYCODONE
     Indication: PAIN
     Route: 048
     Dates: start: 20141020
  9. NALOXON [Concomitant]
     Indication: PAIN
     Route: 048
     Dates: start: 20141020

REACTIONS (1)
  - Oesophagitis [Recovered/Resolved]

NARRATIVE: CASE EVENT DATE: 20141121
